FAERS Safety Report 5105398-7 (Version None)
Quarter: 2006Q3

REPORT INFORMATION
  Report Type: 
  Country: None (occurrence: None)
  Receive Date: 20060915
  Receipt Date: 20060717
  Transmission Date: 20061208
  Serious: Yes (Other)
  Sender: FDA-Public Use
  Company Number: PHRM2006FR02144

PATIENT
  Age: 50 Year
  Sex: Female

DRUGS (1)
  1. FEMARA [Suspect]
     Indication: BREAST CANCER
     Dosage: 2.5 MG, QD
     Route: 051
     Dates: start: 20060401

REACTIONS (2)
  - AMAUROSIS FUGAX [None]
  - RETINAL VEIN THROMBOSIS [None]
